FAERS Safety Report 8358004-2 (Version None)
Quarter: 2012Q2

REPORT INFORMATION
  Report Type: 
  Country: None (occurrence: None)
  Receive Date: 20120514
  Receipt Date: 20111219
  Transmission Date: 20120825
  Serious: No
  Sender: FDA-Public Use
  Company Number: US-ABBOTT-11P-163-0885610-00

PATIENT
  Sex: Female

DRUGS (11)
  1. FERROUS SULFATE TAB [Concomitant]
     Indication: PRODUCT USED FOR UNKNOWN INDICATION
  2. PRAVACHOL [Concomitant]
     Indication: PRODUCT USED FOR UNKNOWN INDICATION
  3. GENGRAF [Suspect]
     Indication: HEART TRANSPLANT
     Route: 048
     Dates: start: 20000101
  4. BACTRIM [Concomitant]
     Indication: PRODUCT USED FOR UNKNOWN INDICATION
  5. DONNATAL [Concomitant]
     Indication: PRODUCT USED FOR UNKNOWN INDICATION
  6. METRONIDAZOLE [Concomitant]
     Indication: PRODUCT USED FOR UNKNOWN INDICATION
  7. CELLCEPT [Concomitant]
     Indication: PRODUCT USED FOR UNKNOWN INDICATION
  8. DEXILANT [Concomitant]
     Indication: PRODUCT USED FOR UNKNOWN INDICATION
  9. GENGRAF [Suspect]
     Indication: HEART TRANSPLANT
     Route: 048
     Dates: start: 20000101
  10. GENGRAF [Suspect]
     Route: 048
     Dates: start: 20000101
  11. ELAVIL [Concomitant]
     Indication: PRODUCT USED FOR UNKNOWN INDICATION

REACTIONS (4)
  - RASH [None]
  - PRODUCT QUALITY ISSUE [None]
  - CONSTIPATION [None]
  - DRUG INTOLERANCE [None]
